FAERS Safety Report 11170578 (Version 1)
Quarter: 2015Q2

REPORT INFORMATION
  Report Type: Spontaneous
  Country: US (occurrence: US)
  Receive Date: 20150608
  Receipt Date: 20150608
  Transmission Date: 20150821
  Serious: No
  Sender: FDA-Public Use
  Company Number: US-BAYER-2015-307829

PATIENT
  Age: 53 Year
  Sex: Female

DRUGS (1)
  1. GADAVIST [Suspect]
     Active Substance: GADOBUTROL
     Indication: COMPUTERISED TOMOGRAM PELVIS
     Dosage: 8 ML, ONCE
     Route: 051
     Dates: start: 20150604, end: 20150604

REACTIONS (3)
  - Pruritus [None]
  - Urticaria [None]
  - Product use issue [None]

NARRATIVE: CASE EVENT DATE: 20150604
